FAERS Safety Report 15160381 (Version 2)
Quarter: 2019Q2

REPORT INFORMATION
  Report Type: Report from Study
  Country: BR (occurrence: BR)
  Receive Date: 20180718
  Receipt Date: 20190423
  Transmission Date: 20190711
  Serious: Yes (Hospitalization, Other)
  Sender: FDA-Public Use
  Company Number: PHHY2018BR047223

PATIENT
  Age: 94 Year
  Sex: Female
  Weight: 41 kg

DRUGS (1)
  1. ACLASTA [Suspect]
     Active Substance: ZOLEDRONIC ACID
     Indication: OSTEOPOROSIS
     Dosage: UNK
     Route: 042
     Dates: start: 2016

REACTIONS (10)
  - Abdominal discomfort [Unknown]
  - Chest pain [Recovered/Resolved]
  - Haematochezia [Unknown]
  - Nervousness [Unknown]
  - Electrocardiogram abnormal [Unknown]
  - Influenza [Unknown]
  - Abdominal distension [Unknown]
  - Hypertension [Unknown]
  - Dyspepsia [Unknown]
  - Incorrect route of product administration [Unknown]

NARRATIVE: CASE EVENT DATE: 20180614
